FAERS Safety Report 5352175-8 (Version None)
Quarter: 2007Q2

REPORT INFORMATION
  Report Type: 
  Country: None (occurrence: None)
  Receive Date: 20070611
  Receipt Date: 20070601
  Transmission Date: 20071010
  Serious: Yes (Death, Hospitalization)
  Sender: FDA-Public Use
  Company Number: GB-JNJFOC-20070500346

PATIENT
  Sex: Male
  Weight: 68 kg

DRUGS (6)
  1. TMC114 [Suspect]
     Route: 048
  2. TMC114 [Suspect]
     Indication: HIV INFECTION
     Route: 048
  3. RITONAVIR [Suspect]
     Indication: HIV INFECTION
     Route: 048
  4. LAMIVUDINE [Concomitant]
     Indication: HIV INFECTION
     Route: 065
  5. DIDANOSINE [Concomitant]
     Indication: HIV INFECTION
     Route: 048
  6. TRUVADA [Concomitant]
     Indication: HIV INFECTION
     Route: 048

REACTIONS (4)
  - ACUTE RESPIRATORY DISTRESS SYNDROME [None]
  - BLOOD PRESSURE DECREASED [None]
  - PNEUMOTHORAX [None]
  - RENAL FAILURE ACUTE [None]
